FAERS Safety Report 20593761 (Version 3)
Quarter: 2023Q2

REPORT INFORMATION
  Report Type: Other
  Country: US (occurrence: None)
  Receive Date: 20220315
  Receipt Date: 20230512
  Transmission Date: 20230721
  Serious: Yes (Other)
  Sender: FDA-Public Use
  Company Number: US-ROCHE-3040119

PATIENT
  Sex: Female
  Weight: 49.032 kg

DRUGS (1)
  1. OCREVUS [Suspect]
     Active Substance: OCRELIZUMAB
     Indication: Relapsing-remitting multiple sclerosis
     Dosage: 300 MG ON DAY 1 AND DAY 15, DATE OF TREATMENT: 07/APR/2023, 07/OCT/2022
     Route: 042
     Dates: start: 20210322

REACTIONS (4)
  - COVID-19 [Recovered/Resolved]
  - Multiple sclerosis [Unknown]
  - Fatigue [Not Recovered/Not Resolved]
  - Hepatic enzyme increased [Not Recovered/Not Resolved]

NARRATIVE: CASE EVENT DATE: 20210405
